FAERS Safety Report 7058823-9 (Version None)
Quarter: 2010Q4

REPORT INFORMATION
  Report Type: 
  Country: None (occurrence: None)
  Receive Date: 20101022
  Receipt Date: 20101008
  Transmission Date: 20110411
  Serious: Yes (Congenital Anomaly)
  Sender: FDA-Public Use
  Company Number: NL-ELI_LILLY_AND_COMPANY-NL201008008475

PATIENT

DRUGS (5)
  1. PROZAC [Suspect]
     Dosage: 20 MG, UNK
     Route: 064
  2. NORLEVO [Concomitant]
     Dosage: 0.75 MG, UNK
     Route: 061
  3. PARACETAMOL [Concomitant]
     Route: 064
  4. ANESTHETICS, LOCAL [Concomitant]
     Route: 064
  5. ALCOHOL [Concomitant]

REACTIONS (2)
  - DRUG EXPOSURE DURING PREGNANCY [None]
  - TALIPES [None]
